FAERS Safety Report 7369702-1 (Version None)
Quarter: 2011Q1

REPORT INFORMATION
  Report Type: 
  Country: None (occurrence: None)
  Receive Date: 20110323
  Receipt Date: 20100916
  Transmission Date: 20110831
  Serious: Yes (Hospitalization, Other)
  Sender: FDA-Public Use
  Company Number: US-BAYER-201026199NA

PATIENT
  Sex: Female
  Weight: 59.091 kg

DRUGS (26)
  1. HYDROCODONE BITARTRATE [Concomitant]
  2. PROVENTIL [Concomitant]
     Dates: start: 20090819
  3. CILEST [Concomitant]
  4. ALBUTEROL [Concomitant]
     Indication: ASTHMA
  5. TRIMETHOPRIM [Concomitant]
     Dosage: UNK
     Dates: start: 20090626
  6. ROZEREM [Concomitant]
  7. ANTIPSYCHOTICS [Concomitant]
     Dates: start: 20090819
  8. NEXIUM [Concomitant]
     Dates: start: 20090819
  9. POTASSIUM CHLORIDE [Concomitant]
  10. ROZEREM [Concomitant]
     Dates: start: 20090820
  11. ALPRAZOLAM [Concomitant]
  12. XANAX [Concomitant]
  13. ZANAFLEX [Concomitant]
  14. ORTHO TRI-CYCLEN [Concomitant]
  15. LYRICA [Concomitant]
     Dates: start: 20090819
  16. TOPAMAX [Concomitant]
     Dates: start: 20090820
  17. UNCODEABLE ^INVESTIGATIONAL DRUG^ [Concomitant]
     Dates: start: 20090819
  18. SULFAMETHAZINE [Concomitant]
     Dosage: UNK
     Dates: start: 20090626
  19. CLOMIPRAMINE [Concomitant]
  20. TOPIRAMATE [Concomitant]
  21. YAZ [Suspect]
     Route: 048
     Dates: start: 20080101, end: 20100101
  22. SYMBICORT [Concomitant]
     Dates: start: 20090819
  23. ANAFRANIL [Concomitant]
     Dates: start: 20090820
  24. HYDROXYZINE PAMOATE [Concomitant]
  25. PROMETHEGAN [Concomitant]
  26. TIZANIDINE [Concomitant]

REACTIONS (11)
  - NAUSEA [None]
  - STRESS [None]
  - CHOLELITHIASIS [None]
  - DIARRHOEA [None]
  - ABDOMINAL PAIN [None]
  - ANXIETY [None]
  - ABDOMINAL PAIN UPPER [None]
  - CHOLECYSTITIS [None]
  - VOMITING [None]
  - BILIARY COLIC [None]
  - PANCREATITIS [None]
